FAERS Safety Report 7649866-2 (Version None)
Quarter: 2011Q3

REPORT INFORMATION
  Report Type: 
  Country: None (occurrence: None)
  Receive Date: 20110802
  Receipt Date: 20110729
  Transmission Date: 20111222
  Serious: Yes (Death, Life-Threatening)
  Sender: FDA-Public Use
  Company Number: JP-SANOFI-AVENTIS-2011SA039885

PATIENT
  Age: 54 Year
  Sex: Female
  Weight: 48 kg

DRUGS (30)
  1. OXALIPLATIN [Suspect]
     Indication: RECTAL CANCER
     Route: 041
     Dates: start: 20110112, end: 20110112
  2. LEUCOVORIN CALCIUM [Concomitant]
     Dosage: 250MG/BODY
     Route: 041
     Dates: start: 20100510, end: 20100712
  3. DEXAMETHASONE SODIUM PHOSPHATE [Concomitant]
     Indication: PREMEDICATION
     Route: 041
     Dates: start: 20100329, end: 20110112
  4. ALOXI [Concomitant]
     Indication: PREMEDICATION
     Route: 041
     Dates: start: 20100712, end: 20110112
  5. DIFLUCAN [Concomitant]
     Route: 048
     Dates: end: 20110124
  6. ALENDRONATE SODIUM [Concomitant]
     Route: 048
     Dates: end: 20110124
  7. SENNOSIDE A [Concomitant]
     Route: 048
     Dates: end: 20110124
  8. OXALIPLATIN [Suspect]
     Dosage: 90MG/BODY, CYCLE 1-3
     Route: 041
     Dates: start: 20100329
  9. OXALIPLATIN [Suspect]
     Dosage: 100MG/BODY, CYCLE 4-8
     Route: 041
     Dates: start: 20100510
  10. OXALIPLATIN [Suspect]
     Dosage: 90MG/BODY CYCLE 11 AND 15 WITHOUT OXALIPLATIN.
     Route: 041
     Dates: start: 20100816
  11. ALL OTHER THERAPEUTIC PRODUCTS [Suspect]
     Indication: PNEUMONIA INFLUENZAL
     Dosage: DAILY DOSE REPORTED AS 300 MG
     Route: 041
     Dates: start: 20110119, end: 20110126
  12. CIPROFLOXACIN HCL [Suspect]
     Indication: PNEUMONIA INFLUENZAL
     Dosage: DAILY DOSE REPORTED AS 300 MG
     Route: 041
     Dates: start: 20110119, end: 20110126
  13. LEUCOVORIN CALCIUM [Concomitant]
     Indication: RECTAL CANCER
     Dosage: 200MG/BODY
     Route: 041
     Dates: start: 20100329, end: 20100426
  14. CEVIMELINE HYDROCHLORIDE [Concomitant]
     Route: 048
     Dates: end: 20110124
  15. CANDESARTAN CILEXETIL [Concomitant]
     Route: 048
     Dates: end: 20110124
  16. PREDNISOLONE [Concomitant]
     Route: 048
     Dates: end: 20110124
  17. LOXONIN [Concomitant]
     Route: 048
     Dates: end: 20110124
  18. KETOPROFEN [Concomitant]
     Dosage: TRANS OSSEOUS ROUTE
     Dates: end: 20110124
  19. ALL OTHER THERAPEUTIC PRODUCTS [Suspect]
     Dosage: DAILY DOSE REPORTED AS 1 G
     Route: 041
     Dates: start: 20110119, end: 20110126
  20. RAMELTEON [Concomitant]
     Indication: PREMEDICATION
     Route: 041
     Dates: start: 20100329, end: 20100628
  21. POLARAMINE [Concomitant]
     Indication: PREMEDICATION
     Route: 041
     Dates: start: 20100329, end: 20110112
  22. FLUOROURACIL [Suspect]
     Indication: RECTAL CANCER
     Dosage: DAILY DOSE REPORTED AS 400 MG/2500 MG
     Route: 041
     Dates: start: 20100329, end: 20100426
  23. FLUOROURACIL [Suspect]
     Dosage: DAILY DOSE REPORTED AS 500 MG/3000 MG
     Route: 041
     Dates: start: 20100510, end: 20100712
  24. LEUCOVORIN CALCIUM [Concomitant]
     Dosage: 200MG/BODY
     Route: 041
     Dates: start: 20100816, end: 20110112
  25. MAGNESIUM OXIDE [Concomitant]
     Route: 041
     Dates: end: 20110124
  26. SELBEX [Concomitant]
     Route: 048
     Dates: end: 20110124
  27. LEVOTHYROXINE SODIUM [Concomitant]
     Route: 048
     Dates: end: 20110124
  28. FLUOROURACIL [Suspect]
     Dosage: DAILY DOSE REPORTED AS 400 MG/2500 MG
     Route: 041
     Dates: start: 20100816, end: 20110112
  29. RABEPRAZOLE SODIUM [Concomitant]
     Route: 048
     Dates: end: 20110124
  30. HYALEIN [Concomitant]
     Dosage: INTRAOSSEOUS
     Dates: end: 20110124

REACTIONS (5)
  - RENAL TUBULAR NECROSIS [None]
  - HAEMOGLOBIN DECREASED [None]
  - PNEUMONIA INFLUENZAL [None]
  - MULTI-ORGAN FAILURE [None]
  - INFLUENZA [None]
